FAERS Safety Report 10899368 (Version 1)
Quarter: 2015Q1

REPORT INFORMATION
  Report Type: Spontaneous
  Country: US (occurrence: US)
  Receive Date: 20150309
  Receipt Date: 20150309
  Transmission Date: 20150721
  Serious: Yes (Other)
  Sender: FDA-Public Use
  Company Number: US-BAYER-2014-131476

PATIENT
  Age: 53 Year
  Sex: Female

DRUGS (12)
  1. GABAPENTIN. [Suspect]
     Active Substance: GABAPENTIN
     Dosage: UNK UNK, UNK
  2. BAYER CHEWABLE LOW DOSE ASPIRIN ORANGE FLAVORED [Suspect]
     Active Substance: ASPIRIN
     Indication: PAIN
     Dosage: 30 MG, UNK
     Dates: start: 2008, end: 2011
  3. CELEBREX [Suspect]
     Active Substance: CELECOXIB
     Indication: BONE PAIN
     Dosage: 200 MG, BID WITH FOOD
     Route: 048
     Dates: start: 1990
  4. MOTRIN [Concomitant]
     Active Substance: IBUPROFEN
     Dosage: UNK UNK, UNK
  5. OXAZEPAM. [Concomitant]
     Active Substance: OXAZEPAM
     Indication: PAIN
  6. IBUPROFENE [Concomitant]
     Active Substance: IBUPROFEN
     Indication: PAIN
     Dosage: 90 MG, TID
  7. NEURONTIN [Concomitant]
     Active Substance: GABAPENTIN
     Indication: NEURALGIA
     Dosage: UNK UNK, UNK
  8. BAYER CHEWABLE LOW DOSE ASPIRIN ORANGE FLAVORED [Suspect]
     Active Substance: ASPIRIN
     Indication: PAIN
     Dosage: 800 MG, TID
     Route: 048
  9. IBUPROFENE [Concomitant]
     Active Substance: IBUPROFEN
     Indication: PAIN
     Dosage: 800 MG, TID
     Route: 048
     Dates: end: 2010
  10. OXYCODONE [Suspect]
     Active Substance: OXYCODONE
     Indication: PAIN
     Dosage: UNK UNK, UNK
     Dates: start: 2008
  11. CELEBREX [Suspect]
     Active Substance: CELECOXIB
     Indication: BONE PAIN
     Dosage: UNK, UNK UNK
     Dates: start: 2001
  12. ADVIL [Concomitant]
     Active Substance: IBUPROFEN

REACTIONS (15)
  - Hallucination [None]
  - Pain [None]
  - Gastrointestinal pain [None]
  - Urticaria [None]
  - Asthenia [None]
  - Intentional product misuse [None]
  - Nightmare [None]
  - Fatigue [None]
  - Vomiting [None]
  - Malaise [None]
  - Euphoric mood [None]
  - Dehydration [None]
  - Extra dose administered [None]
  - Pain [Unknown]
  - Nausea [None]
